FAERS Safety Report 18519325 (Version 1)
Quarter: 2020Q4

REPORT INFORMATION
  Report Type: Report from Study
  Country: US (occurrence: US)
  Receive Date: 20201118
  Receipt Date: 20201118
  Transmission Date: 20210114
  Serious: Yes (Death, Hospitalization)
  Sender: FDA-Public Use
  Company Number: US-BAUSCH-BL-2018-017792

PATIENT
  Age: 73 Year
  Sex: Female
  Weight: 87.17 kg

DRUGS (10)
  1. XIFAXAN [Suspect]
     Active Substance: RIFAXIMIN
     Indication: LIVER DISORDER
     Route: 048
     Dates: start: 2016
  2. XIFAXAN [Suspect]
     Active Substance: RIFAXIMIN
     Route: 048
     Dates: end: 20180625
  3. XIFAXAN [Suspect]
     Active Substance: RIFAXIMIN
     Route: 048
     Dates: start: 201807, end: 2019
  4. IRON [Concomitant]
     Active Substance: IRON
     Indication: MINERAL SUPPLEMENTATION
  5. XIFAXAN [Suspect]
     Active Substance: RIFAXIMIN
     Route: 048
  6. XIFAXAN [Suspect]
     Active Substance: RIFAXIMIN
     Route: 048
     Dates: start: 201706
  7. LOSARTAN. [Concomitant]
     Active Substance: LOSARTAN
     Indication: BLOOD PRESSURE ABNORMAL
  8. SPIRONOLACTONE. [Concomitant]
     Active Substance: SPIRONOLACTONE
     Indication: FLUID RETENTION
  9. FUROSEMIDE. [Concomitant]
     Active Substance: FUROSEMIDE
     Indication: FLUID RETENTION
  10. INSULIN NOVOLIN-N [Concomitant]
     Indication: DIABETES MELLITUS
     Dosage: 45 UNITS IN THE MORNING AND 45 UNITS IN THE EVENING

REACTIONS (8)
  - Fall [Not Recovered/Not Resolved]
  - Dizziness [Recovered/Resolved]
  - Balance disorder [Recovered/Resolved]
  - Insurance issue [Unknown]
  - Wound [Recovering/Resolving]
  - Malaise [Not Recovered/Not Resolved]
  - Therapy interrupted [Unknown]
  - Death [Fatal]

NARRATIVE: CASE EVENT DATE: 201706
